FAERS Safety Report 11862314 (Version 1)
Quarter: 2015Q4

REPORT INFORMATION
  Report Type: Spontaneous
  Country: US (occurrence: None)
  Receive Date: 20151222
  Receipt Date: 20151222
  Transmission Date: 20160305
  Serious: Yes (Other)
  Sender: FDA-Public Use
  Company Number: None

PATIENT
  Age: 69 Year
  Sex: Male
  Weight: 117.48 kg

DRUGS (1)
  1. OPDIVO [Suspect]
     Active Substance: NIVOLUMAB
     Indication: BENIGN LUNG NEOPLASM
     Route: 042
     Dates: start: 20150909

REACTIONS (3)
  - Myalgia [None]
  - Asthenia [None]
  - Myositis [None]

NARRATIVE: CASE EVENT DATE: 20150928
